FAERS Safety Report 16331725 (Version 1)
Quarter: 2019Q2

REPORT INFORMATION
  Report Type: Spontaneous
  Country: CN (occurrence: CN)
  Receive Date: 20190520
  Receipt Date: 20190520
  Transmission Date: 20190711
  Serious: Yes (Hospitalization)
  Sender: FDA-Public Use
  Company Number: CN-BAYER-2019-094227

PATIENT
  Age: 27 Year
  Sex: Male
  Weight: 96 kg

DRUGS (2)
  1. PIPERACILLIN AND TAZOBACTAM [Suspect]
     Active Substance: PIPERACILLIN SODIUM\TAZOBACTAM SODIUM
     Indication: TONSILLITIS
     Dosage: 4.5 G, TID
     Route: 041
     Dates: start: 20190416, end: 20190422
  2. AVELOX [Suspect]
     Active Substance: MOXIFLOXACIN HYDROCHLORIDE
     Indication: TONSILLITIS
     Dosage: 0.4 G, QD
     Route: 041
     Dates: start: 20190416, end: 20190422

REACTIONS (3)
  - Bone marrow failure [Recovering/Resolving]
  - Product use in unapproved indication [None]
  - Off label use [None]

NARRATIVE: CASE EVENT DATE: 20190416
